FAERS Safety Report 19372281 (Version 1)
Quarter: 2021Q2

REPORT INFORMATION
  Report Type: Spontaneous
  Country: US (occurrence: US)
  Receive Date: 20210603
  Receipt Date: 20210603
  Transmission Date: 20210717
  Serious: Yes (Hospitalization)
  Sender: FDA-Public Use
  Company Number: None

PATIENT
  Age: 92 Year
  Sex: Male
  Weight: 72.9 kg

DRUGS (4)
  1. CEFEPIME [Suspect]
     Active Substance: CEFEPIME HYDROCHLORIDE
     Indication: OTITIS EXTERNA
     Route: 042
     Dates: start: 20210303, end: 20210404
  2. AZTREONAM. [Suspect]
     Active Substance: AZTREONAM
     Indication: OTITIS EXTERNA
     Route: 042
     Dates: start: 20210410, end: 20210414
  3. AZTREONAM. [Concomitant]
     Active Substance: AZTREONAM
     Dates: start: 20210404, end: 20210414
  4. CEFEPIME [Concomitant]
     Active Substance: CEFEPIME HYDROCHLORIDE
     Dates: start: 20210303, end: 20210404

REACTIONS (2)
  - Hypoxia [None]
  - Rash [None]

NARRATIVE: CASE EVENT DATE: 20210404
